FAERS Safety Report 7432546-6 (Version None)
Quarter: 2011Q2

REPORT INFORMATION
  Report Type: 
  Country: None (occurrence: None)
  Receive Date: 20110422
  Receipt Date: 20110408
  Transmission Date: 20111010
  Serious: Yes (Hospitalization, Other)
  Sender: FDA-Public Use
  Company Number: JP-SANOFI-AVENTIS-2011SA022416

PATIENT
  Age: 56 Year
  Sex: Female

DRUGS (80)
  1. THYRADIN-S [Suspect]
     Route: 065
     Dates: start: 20100602, end: 20100801
  2. LOPEMIN [Suspect]
     Route: 065
     Dates: start: 20100624, end: 20100628
  3. MEROPENEM [Suspect]
     Route: 065
     Dates: start: 20100622, end: 20100624
  4. BIO THREE [Suspect]
     Route: 065
     Dates: start: 20100823, end: 20100830
  5. ASPARA POTASSIUM [Suspect]
     Route: 065
     Dates: start: 20100616, end: 20100621
  6. DECADRON [Suspect]
     Route: 065
     Dates: start: 20100823, end: 20100824
  7. LOXONIN [Suspect]
     Route: 065
     Dates: start: 20100802, end: 20100806
  8. TAXOTERE [Suspect]
     Route: 065
     Dates: start: 20100823, end: 20100823
  9. ENDOXAN [Suspect]
     Route: 065
     Dates: start: 20100802, end: 20100802
  10. MERCAZOLE [Suspect]
     Route: 065
     Dates: end: 20100622
  11. ALFAROL [Suspect]
     Route: 065
     Dates: start: 20100629, end: 20100801
  12. MAINTATE [Suspect]
     Route: 065
     Dates: start: 20100622, end: 20100628
  13. MAINTATE [Suspect]
     Route: 065
     Dates: start: 20100629, end: 20100711
  14. CRAVIT [Suspect]
     Route: 065
     Dates: end: 20100615
  15. CRAVIT [Suspect]
     Route: 065
     Dates: start: 20100726, end: 20100728
  16. GABAPENTIN [Suspect]
     Route: 065
     Dates: start: 20100830, end: 20100830
  17. BIO THREE [Suspect]
     Route: 065
     Dates: start: 20100809, end: 20100815
  18. CALCIUM LACTATE [Suspect]
     Route: 065
     Dates: start: 20100622, end: 20100628
  19. ASPARA POTASSIUM [Suspect]
     Route: 065
     Dates: start: 20100622, end: 20100622
  20. HACHIAZULE [Suspect]
     Route: 065
     Dates: end: 20100614
  21. LEVOGLUTAMIDE [Suspect]
     Route: 065
     Dates: end: 20100618
  22. ENDOXAN [Suspect]
     Indication: BREAST CANCER
     Route: 065
     Dates: start: 20100614, end: 20100614
  23. ENDOXAN [Suspect]
     Route: 065
     Dates: start: 20100705, end: 20100705
  24. ENDOXAN [Suspect]
     Route: 065
     Dates: start: 20100823, end: 20100823
  25. THYRADIN-S [Suspect]
     Route: 065
     Dates: start: 20100623, end: 20100628
  26. CALCIUM LACTATE [Suspect]
     Route: 065
     Dates: end: 20100621
  27. SERENAL [Suspect]
     Route: 065
     Dates: start: 20100622, end: 20100628
  28. SERENAL [Suspect]
     Route: 065
     Dates: start: 20100629, end: 20100716
  29. SERENAL [Suspect]
     Route: 065
     Dates: start: 20100802, end: 20100822
  30. DECADRON [Suspect]
     Route: 065
     Dates: end: 20100615
  31. LOXONIN [Suspect]
     Route: 065
     Dates: start: 20100621, end: 20100625
  32. LOXONIN [Suspect]
     Route: 065
     Dates: start: 20100712, end: 20100716
  33. LEVOGLUTAMIDE [Suspect]
     Route: 065
     Dates: start: 20100726, end: 20100730
  34. NEUTROGIN [Suspect]
     Route: 058
     Dates: start: 20100712, end: 20100713
  35. TAXOTERE [Suspect]
     Route: 065
     Dates: start: 20100705, end: 20100705
  36. TAXOTERE [Suspect]
     Route: 065
     Dates: start: 20100802, end: 20100802
  37. THYRADIN-S [Suspect]
     Route: 065
     Dates: start: 20100622, end: 20100622
  38. THYRADIN-S [Suspect]
     Route: 065
     Dates: start: 20100802, end: 20100802
  39. THYRADIN-S [Suspect]
     Route: 065
     Dates: start: 20100803, end: 20100830
  40. ZOFRAN [Suspect]
     Route: 065
     Dates: start: 20100802, end: 20100806
  41. BIO THREE [Suspect]
     Route: 065
     Dates: start: 20100726, end: 20100801
  42. VOLTAREN [Suspect]
     Route: 065
     Dates: end: 20100614
  43. NEUTROGIN [Suspect]
     Route: 058
     Dates: start: 20100809, end: 20100810
  44. NEUTROGIN [Suspect]
     Route: 058
     Dates: start: 20100830, end: 20100831
  45. THYRADIN-S [Suspect]
     Route: 065
     Dates: end: 20100621
  46. ALFAROL [Suspect]
     Route: 065
     Dates: end: 20100621
  47. ALFAROL [Suspect]
     Route: 065
     Dates: start: 20100802, end: 20100802
  48. BIO THREE [Suspect]
     Route: 065
     Dates: start: 20100621, end: 20100711
  49. BIO THREE [Suspect]
     Route: 065
     Dates: start: 20100712, end: 20100718
  50. BIO THREE [Suspect]
     Route: 065
     Dates: start: 20100802, end: 20100808
  51. TRASTUZUMAB [Suspect]
     Route: 065
     Dates: start: 20100621, end: 20100830
  52. SERENAL [Suspect]
     Route: 065
     Dates: end: 20100621
  53. ASPARA POTASSIUM [Suspect]
     Route: 065
     Dates: end: 20100615
  54. ASPARA POTASSIUM [Suspect]
     Route: 065
     Dates: start: 20100629, end: 20100704
  55. LOXONIN [Suspect]
     Route: 065
     Dates: start: 20100705, end: 20100709
  56. LOXONIN [Suspect]
     Route: 065
     Dates: start: 20100809, end: 20100827
  57. LEVOGLUTAMIDE [Suspect]
     Route: 065
     Dates: start: 20100802, end: 20100806
  58. LEVOGLUTAMIDE [Suspect]
     Route: 065
     Dates: start: 20100830, end: 20100830
  59. TAXOTERE [Suspect]
     Indication: BREAST CANCER
     Route: 065
     Dates: start: 20100614, end: 20100614
  60. ALFAROL [Suspect]
     Route: 065
     Dates: start: 20100803, end: 20100830
  61. MAINTATE [Suspect]
     Route: 065
     Dates: start: 20100615, end: 20100621
  62. CRAVIT [Suspect]
     Route: 065
     Dates: start: 20100830, end: 20100830
  63. GABAPENTIN [Suspect]
     Route: 065
     Dates: start: 20100816, end: 20100822
  64. TRASTUZUMAB [Suspect]
     Indication: BREAST CANCER
     Route: 065
     Dates: start: 20100614, end: 20100614
  65. LOXONIN [Suspect]
     Route: 065
     Dates: start: 20100830, end: 20100830
  66. LEVOGLUTAMIDE [Suspect]
     Route: 065
     Dates: start: 20100705, end: 20100709
  67. LEVOGLUTAMIDE [Suspect]
     Route: 065
     Dates: start: 20100712, end: 20100716
  68. NATEGLINIDE [Suspect]
     Route: 065
     Dates: end: 20100715
  69. NEUTROGIN [Suspect]
     Indication: FEBRILE NEUTROPENIA
     Route: 058
     Dates: start: 20100621, end: 20100622
  70. ALFAROL [Suspect]
     Route: 065
     Dates: start: 20100622, end: 20100628
  71. MAINTATE [Suspect]
     Route: 065
     Dates: end: 20100614
  72. DECADRON [Suspect]
     Route: 065
     Dates: start: 20100705, end: 20100706
  73. LOXONIN [Suspect]
     Route: 065
     Dates: end: 20100618
  74. GUAIAZULENE [Suspect]
     Route: 065
     Dates: start: 20100624, end: 20100624
  75. ZOFRAN [Suspect]
     Route: 065
     Dates: start: 20100705, end: 20100709
  76. DECADRON [Suspect]
     Route: 065
     Dates: start: 20100802, end: 20100803
  77. LOXONIN [Suspect]
     Route: 065
     Dates: start: 20100726, end: 20100730
  78. LEVOGLUTAMIDE [Suspect]
     Route: 065
     Dates: start: 20100621, end: 20100625
  79. LEVOGLUTAMIDE [Suspect]
     Route: 065
     Dates: start: 20100809, end: 20100827
  80. PERDIPINE-LA [Suspect]
     Route: 065
     Dates: start: 20100622, end: 20100628

REACTIONS (16)
  - PYREXIA [None]
  - WHITE BLOOD CELL COUNT DECREASED [None]
  - INTERSTITIAL LUNG DISEASE [None]
  - COUGH [None]
  - RALES [None]
  - BLOOD LACTATE DEHYDROGENASE INCREASED [None]
  - NEUTROPHIL COUNT DECREASED [None]
  - MALAISE [None]
  - BRONCHITIS [None]
  - RHEUMATOID ARTHRITIS [None]
  - OROPHARYNGEAL PAIN [None]
  - MUSCULOSKELETAL STIFFNESS [None]
  - DYSPNOEA [None]
  - C-REACTIVE PROTEIN INCREASED [None]
  - FEBRILE NEUTROPENIA [None]
  - ARTHRALGIA [None]
